FAERS Safety Report 10476062 (Version 1)
Quarter: 2014Q3

REPORT INFORMATION
  Report Type: Spontaneous
  Country: US (occurrence: None)
  Receive Date: 20140923
  Receipt Date: 20140923
  Transmission Date: 20150326
  Serious: Yes (Other)
  Sender: FDA-Public Use
  Company Number: PI-10643

PATIENT
  Age: 46 Year
  Sex: Female

DRUGS (2)
  1. CHLORAPREP [Suspect]
     Active Substance: CHLORHEXIDINE GLUCONATE\ISOPROPYL ALCOHOL
     Indication: PREOPERATIVE CARE
     Route: 061
     Dates: start: 20140730
  2. CHLORAPREP [Suspect]
     Active Substance: CHLORHEXIDINE GLUCONATE\ISOPROPYL ALCOHOL
     Indication: THERAPEUTIC SKIN CARE TOPICAL
     Route: 061
     Dates: start: 20140730

REACTIONS (8)
  - Facial paresis [None]
  - Dysgeusia [None]
  - Dizziness [None]
  - Tinnitus [None]
  - Accidental exposure to product [None]
  - Deafness neurosensory [None]
  - Deafness [None]
  - Otorrhoea [None]

NARRATIVE: CASE EVENT DATE: 20140730
